FAERS Safety Report 7606704-1 (Version None)
Quarter: 2011Q3

REPORT INFORMATION
  Report Type: 
  Country: None (occurrence: None)
  Receive Date: 20110705
  Receipt Date: 20110622
  Transmission Date: 20111222
  Serious: Yes (Hospitalization)
  Sender: FDA-Public Use
  Company Number: 2011SP029196

PATIENT
  Age: 55 Year
  Weight: 69 kg

DRUGS (2)
  1. PEG-INTRON [Suspect]
     Indication: HEPATITIS C
     Dosage: 80 MCG;QW
     Dates: start: 20071108, end: 20080814
  2. REBETOL [Suspect]
     Indication: HEPATITIS C
     Dosage: 800 MG;QD
     Dates: start: 20071108, end: 20080814

REACTIONS (1)
  - HEPATIC NEOPLASM MALIGNANT [None]
